FAERS Safety Report 10737000 (Version 1)
Quarter: 2015Q1

REPORT INFORMATION
  Report Type: Spontaneous
  Country: IN (occurrence: None)
  Receive Date: 20150122
  Receipt Date: 20150122
  Transmission Date: 20150721
  Serious: Yes (Hospitalization, Other)
  Sender: FDA-Public Use
  Company Number: 2015JUB00011

PATIENT
  Age: 20 Year
  Sex: Female

DRUGS (1)
  1. CARBAMAZEPINE (CARBAMAZEPINE) UNKNOWN [Suspect]
     Active Substance: CARBAMAZEPINE
     Indication: EPILEPSY
     Route: 048

REACTIONS (10)
  - Overdose [None]
  - Mydriasis [None]
  - Hypoglycaemia [None]
  - Haemoglobin decreased [None]
  - Hyporeflexia [None]
  - Neurotoxicity [None]
  - Exposure during pregnancy [None]
  - Shock [None]
  - Sensory loss [None]
  - Cardiotoxicity [None]
